FAERS Safety Report 9774693 (Version 2)
Quarter: 2013Q4

REPORT INFORMATION
  Report Type: Spontaneous
  Country: US (occurrence: US)
  Receive Date: 20131220
  Receipt Date: 20131220
  Transmission Date: 20140711
  Serious: Yes (Hospitalization, Other)
  Sender: FDA-Public Use
  Company Number: US-ASTRAZENECA-2012SE28241

PATIENT
  Age: 70 Year
  Sex: Female
  Weight: 60.8 kg

DRUGS (14)
  1. ATACAND [Suspect]
     Route: 048
  2. ATACAND HCT [Suspect]
     Indication: HYPERTENSION
     Route: 048
     Dates: start: 2008
  3. ATACAND HCT [Suspect]
     Indication: BLOOD PRESSURE ABNORMAL
     Route: 048
     Dates: start: 2008
  4. ATACAND HCT [Suspect]
     Indication: HYPERTENSION
     Route: 048
     Dates: start: 201312, end: 201312
  5. ATACAND HCT [Suspect]
     Indication: BLOOD PRESSURE ABNORMAL
     Route: 048
     Dates: start: 201312, end: 201312
  6. NEXIUM [Suspect]
     Indication: GASTROOESOPHAGEAL REFLUX DISEASE
     Route: 048
     Dates: start: 2007
  7. NEXIUM [Suspect]
     Indication: DYSPEPSIA
     Route: 048
     Dates: start: 2007
  8. TOPROL XL [Suspect]
     Indication: HYPERTENSION
     Dosage: 100 AND HALF 100 MG DAILY
     Route: 048
     Dates: start: 2008
  9. CRESTOR [Suspect]
     Indication: BLOOD CHOLESTEROL INCREASED
     Route: 048
  10. BABY ASPIRIN [Concomitant]
     Dosage: DAILY
  11. FOLIC ACID [Concomitant]
  12. BENADRYL [Concomitant]
     Indication: CHEMOTHERAPY
  13. METFORMIN [Concomitant]
     Indication: DIABETES MELLITUS
  14. LASIX [Concomitant]
     Indication: OEDEMA PERIPHERAL

REACTIONS (19)
  - Myocardial infarction [Unknown]
  - Gait disturbance [Not Recovered/Not Resolved]
  - Dyspnoea [Not Recovered/Not Resolved]
  - Lung carcinoma cell type unspecified stage IV [Unknown]
  - Pleural effusion [Unknown]
  - Atelectasis [Unknown]
  - Malaise [Unknown]
  - Muscle spasms [Unknown]
  - Musculoskeletal discomfort [Unknown]
  - Muscle atrophy [Unknown]
  - Hypertension [Not Recovered/Not Resolved]
  - Body height decreased [Unknown]
  - Balance disorder [Unknown]
  - Blood cholesterol increased [Unknown]
  - Cough [Not Recovered/Not Resolved]
  - Dizziness [Unknown]
  - Intentional drug misuse [Unknown]
  - Drug dose omission [Unknown]
  - Drug ineffective [Unknown]
